FAERS Safety Report 15183578 (Version 1)
Quarter: 2018Q3

REPORT INFORMATION
  Report Type: Spontaneous
  Country: DE (occurrence: DE)
  Receive Date: 20180723
  Receipt Date: 20180723
  Transmission Date: 20181010
  Serious: Yes (Hospitalization)
  Sender: FDA-Public Use
  Company Number: DE-MYLANLABS-2018M1053713

PATIENT
  Age: 60 Year
  Sex: Female

DRUGS (1)
  1. CANDESARTAN/HYDROCHLOROTHIAZIDE [Suspect]
     Active Substance: CANDESARTAN CILEXETIL\HYDROCHLOROTHIAZIDE
     Indication: PRODUCT USED FOR UNKNOWN INDICATION
     Dosage: 8|12.5 MG, 0?0?1?0

REACTIONS (3)
  - Dyspnoea [Unknown]
  - Hypotension [Unknown]
  - General physical health deterioration [Unknown]
